FAERS Safety Report 4273163-9 (Version None)
Quarter: 2004Q1

REPORT INFORMATION
  Report Type: 
  Country: None (occurrence: None)
  Receive Date: 20040116
  Receipt Date: 20031030
  Transmission Date: 20041129
  Serious: Yes (Other)
  Sender: FDA-Public Use
  Company Number: PHNU2003DE03876

PATIENT
  Age: 10 Year
  Sex: Male

DRUGS (3)
  1. RITALIN [Suspect]
     Dosage: UNKNOWN
     Route: 048
     Dates: start: 20030101
  2. DECORTIN [Concomitant]
     Indication: RHEUMATOID ARTHRITIS
     Dosage: 2.5 MG/DAY
     Route: 048
  3. METHOTREXATE [Concomitant]
     Indication: RHEUMATOID ARTHRITIS
     Dosage: UNKNOWN
     Route: 048
     Dates: start: 20031001

REACTIONS (2)
  - ANOREXIA [None]
  - NAUSEA [None]
